FAERS Safety Report 15785186 (Version 4)
Quarter: 2019Q1

REPORT INFORMATION
  Report Type: Spontaneous
  Country: US (occurrence: US)
  Receive Date: 20190103
  Receipt Date: 20190301
  Transmission Date: 20190417
  Serious: No
  Sender: FDA-Public Use
  Company Number: US-PFIZER INC-2018533886

PATIENT
  Age: 55 Year
  Sex: Male
  Weight: 101 kg

DRUGS (5)
  1. ROCURONIUM BROMIDE. [Suspect]
     Active Substance: ROCURONIUM BROMIDE
     Dosage: 50 MG, UNK [50MG X 1]
     Route: 042
     Dates: start: 20181226, end: 20181226
  2. SEVOFLURANE. [Concomitant]
     Active Substance: SEVOFLURANE
     Indication: LAPAROTOMY
     Dosage: 50 MG, UNK [50MG IV X 1]
     Route: 042
     Dates: start: 20181226, end: 20181226
  3. FENTANYL. [Concomitant]
     Active Substance: FENTANYL
     Dosage: UNK
     Dates: start: 20181226, end: 20181226
  4. VERSED [Concomitant]
     Active Substance: MIDAZOLAM HYDROCHLORIDE
     Dosage: UNK
     Dates: start: 20181226, end: 20181226
  5. ROCURONIUM BROMIDE. [Suspect]
     Active Substance: ROCURONIUM BROMIDE
     Indication: SURGERY
     Dosage: 5 ML, UNK

REACTIONS (1)
  - Drug ineffective [Recovered/Resolved]

NARRATIVE: CASE EVENT DATE: 20181226
